FAERS Safety Report 7134801-6 (Version None)
Quarter: 2010Q4

REPORT INFORMATION
  Report Type: 
  Country: None (occurrence: None)
  Receive Date: 20101203
  Receipt Date: 20090330
  Transmission Date: 20110411
  Serious: Yes (Other)
  Sender: FDA-Public Use
  Company Number: NL-ROCHE-745193

PATIENT

DRUGS (1)
  1. AVASTIN [Suspect]
     Indication: BREAST CANCER
     Route: 042

REACTIONS (2)
  - EMBOLISM ARTERIAL [None]
  - MALIGNANT NEOPLASM PROGRESSION [None]
